FAERS Safety Report 9767734 (Version 1)
Quarter: 2013Q4

REPORT INFORMATION
  Report Type: Report from Study
  Country: CA (occurrence: CA)
  Receive Date: 20131217
  Receipt Date: 20131217
  Transmission Date: 20140711
  Serious: Yes (Other)
  Sender: FDA-Public Use
  Company Number: CA-JNJFOC-20131209829

PATIENT
  Age: 38 Year
  Sex: Female
  Weight: 64.5 kg

DRUGS (8)
  1. REMICADE [Suspect]
     Indication: CROHN^S DISEASE
     Route: 042
     Dates: start: 20110621
  2. IMURAN [Concomitant]
     Route: 065
  3. CALCIUM [Concomitant]
     Route: 065
  4. VITAMIN D [Concomitant]
     Route: 065
  5. FOLIC ACID [Concomitant]
     Route: 065
  6. BIOTIN [Concomitant]
     Route: 065
  7. SALOFALK [Concomitant]
     Route: 065
  8. ASACOL [Concomitant]
     Route: 065

REACTIONS (1)
  - Migraine [Recovered/Resolved]
